FAERS Safety Report 12627130 (Version 1)
Quarter: 2016Q3

REPORT INFORMATION
  Report Type: Report from Study
  Country: AR (occurrence: AR)
  Receive Date: 20160805
  Receipt Date: 20160805
  Transmission Date: 20161109
  Serious: Yes (Death)
  Sender: FDA-Public Use
  Company Number: AR-INCYTE CORPORATION-2016IN004853

PATIENT
  Age: 83 Year
  Sex: Male

DRUGS (1)
  1. JAKAFI [Suspect]
     Active Substance: RUXOLITINIB
     Indication: MYELOFIBROSIS
     Dosage: UNK
     Route: 065
     Dates: start: 20151106, end: 20160323

REACTIONS (2)
  - Choking [Fatal]
  - Pneumonia [Fatal]

NARRATIVE: CASE EVENT DATE: 20160718
